FAERS Safety Report 6679806-4 (Version None)
Quarter: 2010Q2

REPORT INFORMATION
  Report Type: 
  Country: None (occurrence: None)
  Receive Date: 20100413
  Receipt Date: 20090701
  Transmission Date: 20101027
  Serious: No
  Sender: FDA-Public Use
  Company Number: US-ASTRAZENECA-2009UW18324

PATIENT
  Sex: Female

DRUGS (2)
  1. ATENOLOL [Suspect]
     Route: 048
  2. NORVASC [Concomitant]

REACTIONS (3)
  - DRY MOUTH [None]
  - PRURITUS [None]
  - RASH [None]
